FAERS Safety Report 15495595 (Version 2)
Quarter: 2018Q4

REPORT INFORMATION
  Report Type: Spontaneous
  Country: US (occurrence: US)
  Receive Date: 20181014
  Receipt Date: 20181016
  Transmission Date: 20190205
  Serious: Yes (Other)
  Sender: FDA-Public Use
  Company Number: US-BAXTER-2018BAX025272

PATIENT
  Age: 80 Year
  Sex: Female

DRUGS (1)
  1. CEFTRIAXONE AND DEXTROSE [Suspect]
     Active Substance: CEFTRIAXONE SODIUM
     Indication: METASTASES TO MENINGES
     Route: 042
     Dates: start: 2012

REACTIONS (3)
  - Pyrexia [Recovering/Resolving]
  - Hypotension [Recovering/Resolving]
  - Jarisch-Herxheimer reaction [Recovering/Resolving]

NARRATIVE: CASE EVENT DATE: 2012
